FAERS Safety Report 23029701 (Version 2)
Quarter: 2024Q1

REPORT INFORMATION
  Report Type: Spontaneous
  Country: US (occurrence: US)
  Receive Date: 20231004
  Receipt Date: 20240104
  Transmission Date: 20240409
  Serious: Yes (Other)
  Sender: FDA-Public Use
  Company Number: US-JNJFOC-20230962305

PATIENT
  Sex: Female

DRUGS (1)
  1. REMICADE [Suspect]
     Active Substance: INFLIXIMAB
     Indication: Product used for unknown indication
     Route: 041
     Dates: start: 20230911

REACTIONS (4)
  - Blindness transient [Recovered/Resolved]
  - Infusion related reaction [Unknown]
  - Heart rate increased [Unknown]
  - Fatigue [Unknown]

NARRATIVE: CASE EVENT DATE: 20230921
